FAERS Safety Report 5062302-8 (Version None)
Quarter: 2006Q3

REPORT INFORMATION
  Report Type: 
  Country: None (occurrence: None)
  Receive Date: 20060703
  Receipt Date: 20051017
  Transmission Date: 20061208
  Serious: No
  Sender: FDA-Public Use
  Company Number: 2005S1010309

PATIENT
  Age: 32 Year
  Sex: Male

DRUGS (4)
  1. CLOZAPINE [Suspect]
     Indication: SCHIZOPHRENIA
     Dosage: PO
     Route: 048
     Dates: start: 20040318
  2. RISPERIDONE [Concomitant]
  3. CARBAMAZEPINE [Concomitant]
  4. LORAZEPAM [Concomitant]

REACTIONS (1)
  - GRANULOCYTOPENIA [None]
